FAERS Safety Report 7166822-1 (Version None)
Quarter: 2010Q4

REPORT INFORMATION
  Report Type: 
  Country: None (occurrence: None)
  Receive Date: 20101203
  Receipt Date: 20101012
  Transmission Date: 20110411
  Serious: No
  Sender: FDA-Public Use
  Company Number: 2010SA064903

PATIENT
  Age: 82 Year
  Sex: Male
  Weight: 66.66 kg

DRUGS (6)
  1. PLAVIX [Suspect]
     Indication: CORONARY ARTERY DISEASE
     Dosage: 75 MILLIGRAM(S), DAILY, ORAL
     Route: 048
     Dates: start: 20100901
  2. PLAVIX [Suspect]
     Indication: PERCUTANEOUS CORONARY INTERVENTION
     Dosage: 75 MILLIGRAM(S), DAILY, ORAL
     Route: 048
     Dates: start: 20100901
  3. PLAVIX [Suspect]
     Indication: STENT PLACEMENT
     Dosage: 75 MILLIGRAM(S), DAILY, ORAL
     Route: 048
     Dates: start: 20100901
  4. ASPIRIN [Suspect]
  5. COREG [Concomitant]
  6. FUROSEMIDE [Concomitant]

REACTIONS (8)
  - CHEST PAIN [None]
  - DYSPNOEA [None]
  - FAECES DISCOLOURED [None]
  - FATIGUE [None]
  - FEELING ABNORMAL [None]
  - HAEMOGLOBIN DECREASED [None]
  - INSOMNIA [None]
  - SKIN DISORDER [None]
